FAERS Safety Report 17656925 (Version 2)
Quarter: 2020Q2

REPORT INFORMATION
  Report Type: Report from Study
  Country: GB (occurrence: GB)
  Receive Date: 20200410
  Receipt Date: 20200515
  Transmission Date: 20200713
  Serious: Yes (Hospitalization, Other)
  Sender: FDA-Public Use
  Company Number: GB-BIOMARINP-001304

PATIENT
  Age: 7 Year
  Sex: Female
  Weight: 19 kg

DRUGS (2)
  1. STEM CELL [Concomitant]
     Active Substance: HUMAN HEMATOPOIETIC PROGENITOR CELLS
     Indication: PRODUCT USED FOR UNKNOWN INDICATION
  2. NAGLAZYME [Suspect]
     Active Substance: GALSULFASE
     Indication: MUCOPOLYSACCHARIDOSIS VI
     Dosage: 15MG,QW
     Route: 041
     Dates: start: 20060815

REACTIONS (2)
  - Cervical cord compression [Recovered/Resolved]
  - Encephalitis viral [Recovered/Resolved]

NARRATIVE: CASE EVENT DATE: 20100412
